FAERS Safety Report 10871833 (Version 1)
Quarter: 2015Q1

REPORT INFORMATION
  Report Type: Spontaneous
  Country: US (occurrence: None)
  Receive Date: 20150223
  Receipt Date: 20150223
  Transmission Date: 20150721
  Serious: No
  Sender: FDA-Public Use
  Company Number: None

PATIENT
  Age: 56 Year
  Sex: Male
  Weight: 131.54 kg

DRUGS (3)
  1. VALSARTAN AND HYDROCHLOROTHIAZIDE [Suspect]
     Active Substance: HYDROCHLOROTHIAZIDE\VALSARTAN
     Indication: HYPERTENSION
     Dosage: 1 PILL
     Route: 048
     Dates: start: 20150214, end: 20150221
  2. VITAMIN D [Concomitant]
     Active Substance: CHOLECALCIFEROL
  3. VALSARTAN AND HCTZ [Concomitant]

REACTIONS (6)
  - Product quality issue [None]
  - Feeling abnormal [None]
  - Pollakiuria [None]
  - Drug ineffective [None]
  - Irritability [None]
  - Product substitution issue [None]

NARRATIVE: CASE EVENT DATE: 20150221
